FAERS Safety Report 5937943-3 (Version None)
Quarter: 2008Q4

REPORT INFORMATION
  Report Type: 
  Country: None (occurrence: None)
  Receive Date: 20081031
  Receipt Date: 20081020
  Transmission Date: 20090506
  Serious: Yes (Other)
  Sender: FDA-Public Use
  Company Number: US-PFIZER INC-2008088518

PATIENT
  Sex: Female

DRUGS (5)
  1. CHANTIX [Suspect]
     Indication: SMOKING CESSATION THERAPY
  2. TRILEPTAL [Concomitant]
     Indication: CONVULSION
  3. TOPAMAX [Concomitant]
     Indication: CONVULSION
  4. PLENDIL [Concomitant]
     Indication: HYPERTENSION
  5. VALIUM [Concomitant]
     Indication: ANXIETY

REACTIONS (8)
  - ABNORMAL DREAMS [None]
  - AGGRESSION [None]
  - ANGER [None]
  - CHOKING [None]
  - FRUSTRATION [None]
  - GRAND MAL CONVULSION [None]
  - HOSTILITY [None]
  - PSYCHOMOTOR HYPERACTIVITY [None]
